FAERS Safety Report 13953751 (Version 2)
Quarter: 2017Q4

REPORT INFORMATION
  Report Type: Spontaneous
  Country: CL (occurrence: CL)
  Receive Date: 20170911
  Receipt Date: 20171019
  Transmission Date: 20180320
  Serious: Yes (Congenital Anomaly)
  Sender: FDA-Public Use
  Company Number: PHHY2017CL129692

PATIENT
  Sex: Female

DRUGS (1)
  1. GILENYA [Suspect]
     Active Substance: FINGOLIMOD HYDROCHLORIDE
     Indication: FOETAL EXPOSURE DURING PREGNANCY
     Dosage: FETAL DRUG EXPOSURE VIA FATHER: 0.5 MG, UNKNOWN FREQUENCY
     Route: 050

REACTIONS (2)
  - Turner^s syndrome [Unknown]
  - Paternal exposure during pregnancy [Unknown]
